FAERS Safety Report 26128941 (Version 1)
Quarter: 2025Q4

REPORT INFORMATION
  Report Type: Spontaneous
  Country: US (occurrence: US)
  Receive Date: 20251208
  Receipt Date: 20251208
  Transmission Date: 20260117
  Serious: Yes (Hospitalization, Other)
  Sender: ALEMBIC
  Company Number: US-ALEMBIC PHARMACUETICALS LIMITED-2025SCAL001665

PATIENT

DRUGS (2)
  1. LIDOCAINE [Suspect]
     Active Substance: LIDOCAINE
     Indication: Squamous cell carcinoma of the vulva
     Dosage: UNK
     Route: 061
  2. LIDOCAINE [Suspect]
     Active Substance: LIDOCAINE
     Indication: Cancer pain

REACTIONS (7)
  - Local anaesthetic systemic toxicity [Unknown]
  - Hallucination, auditory [Unknown]
  - Seizure [Unknown]
  - Psychotic disorder [Unknown]
  - Agitation [Recovered/Resolved]
  - Drug level increased [Unknown]
  - Paranoia [Unknown]
